FAERS Safety Report 12569355 (Version 3)
Quarter: 2016Q4

REPORT INFORMATION
  Report Type: Report from Study
  Country: DE (occurrence: DE)
  Receive Date: 20160719
  Receipt Date: 20161006
  Transmission Date: 20170207
  Serious: Yes (Hospitalization)
  Sender: FDA-Public Use
  Company Number: DE-ROCHE-1794868

PATIENT
  Age: 38 Year
  Sex: Female
  Weight: 82 kg

DRUGS (13)
  1. EMEND [Concomitant]
     Active Substance: APREPITANT
  2. TRASTUZUMAB [Suspect]
     Active Substance: TRASTUZUMAB
     Indication: BREAST CANCER
     Dosage: ON 17/MAY/2016 RECIEVED LAST DOSE PRIOR TO SAE
     Route: 042
     Dates: start: 20160331, end: 20160531
  3. PERTUZUMAB [Suspect]
     Active Substance: PERTUZUMAB
     Indication: BREAST CANCER
     Dosage: LAST DOSE PRIOR TO SAE: 17/MAY/2016
     Route: 042
     Dates: start: 20160331, end: 20160531
  4. TAVEGIL [Concomitant]
     Active Substance: CLEMASTINE FUMARATE
     Route: 065
     Dates: start: 20160331
  5. MYOCET [Suspect]
     Active Substance: DOXORUBICIN
     Dosage: LAST DOSE PRIOR TO SAE: 24/MAY/2016
     Route: 042
     Dates: start: 20160705
  6. PACLITAXEL. [Suspect]
     Active Substance: PACLITAXEL
     Indication: BREAST CANCER
     Dosage: LAST DOSE PRIOR TO SAE: 24/MAY/2016
     Route: 042
     Dates: start: 20160331, end: 20160531
  7. RANITIDINE. [Concomitant]
     Active Substance: RANITIDINE
     Route: 065
     Dates: start: 20160331
  8. PALONOSETRON [Concomitant]
     Active Substance: PALONOSETRON
     Route: 065
     Dates: start: 20160331
  9. PERTUZUMAB [Suspect]
     Active Substance: PERTUZUMAB
     Dosage: LAST DOSE PRIOR TO SAE: 17/MAY/2016
     Route: 042
     Dates: start: 20160705
  10. PACLITAXEL. [Suspect]
     Active Substance: PACLITAXEL
     Dosage: LAST DOSE PRIOR TO SAE: 24/MAY/2016
     Route: 042
     Dates: start: 20160705
  11. DEXAMETHASONE. [Concomitant]
     Active Substance: DEXAMETHASONE
     Route: 065
     Dates: start: 20160331
  12. TRASTUZUMAB [Suspect]
     Active Substance: TRASTUZUMAB
     Dosage: ON 17/MAY/2016 RECIEVED LAST DOSE PRIOR TO SAE
     Route: 042
     Dates: start: 20160705
  13. MYOCET [Suspect]
     Active Substance: DOXORUBICIN
     Indication: BREAST CANCER
     Dosage: LAST DOSE PRIOR TO SAE: 24/MAY/2016
     Route: 042
     Dates: start: 20160331, end: 20160531

REACTIONS (1)
  - Pneumonia [Recovered/Resolved]

NARRATIVE: CASE EVENT DATE: 20160601
